FAERS Safety Report 8247120-1 (Version None)
Quarter: 2012Q1

REPORT INFORMATION
  Report Type: 
  Country: None (occurrence: None)
  Receive Date: 20120330
  Receipt Date: 20120326
  Transmission Date: 20120608
  Serious: Yes (Hospitalization)
  Sender: FDA-Public Use
  Company Number: NZ-JNJFOC-20090801076

PATIENT
  Sex: Male
  Weight: 80.1 kg

DRUGS (43)
  1. GOLIMUMAB [Suspect]
     Route: 058
     Dates: start: 20090704
  2. GOLIMUMAB [Suspect]
     Route: 058
     Dates: start: 20061018
  3. METHOTREXATE [Suspect]
     Route: 048
     Dates: start: 20070316, end: 20071109
  4. METHOTREXATE [Suspect]
     Route: 048
     Dates: start: 20080502, end: 20080711
  5. FOLIC ACID [Concomitant]
     Route: 048
     Dates: start: 20061019
  6. GOLIMUMAB [Suspect]
     Indication: RHEUMATOID ARTHRITIS
     Route: 058
     Dates: start: 20060920
  7. GOLIMUMAB [Suspect]
     Route: 058
     Dates: start: 20080606
  8. GOLIMUMAB [Suspect]
     Route: 058
     Dates: start: 20070921
  9. ACETAMINOPHEN [Concomitant]
     Route: 048
     Dates: start: 20040116
  10. GOLIMUMAB [Suspect]
     Route: 058
     Dates: start: 20061215
  11. GOLIMUMAB [Suspect]
     Route: 058
     Dates: start: 20071127
  12. GOLIMUMAB [Suspect]
     Route: 058
     Dates: start: 20071214
  13. GOLIMUMAB [Suspect]
     Route: 058
     Dates: start: 20061122
  14. GOLIMUMAB [Suspect]
     Route: 058
     Dates: start: 20070212
  15. GOLIMUMAB [Suspect]
     Route: 058
     Dates: start: 20071017
  16. METHOTREXATE [Suspect]
     Route: 048
     Dates: start: 20061117, end: 20070309
  17. METHOTREXATE [Suspect]
     Route: 048
     Dates: start: 20061020, end: 20061110
  18. METHOTREXATE [Suspect]
     Route: 048
     Dates: start: 20070215, end: 20080418
  19. METHOTREXATE [Concomitant]
     Route: 048
     Dates: start: 20080724
  20. GOLIMUMAB [Suspect]
     Route: 058
     Dates: start: 20070117
  21. GOLIMUMAB [Suspect]
     Route: 058
     Dates: start: 20070502
  22. GOLIMUMAB [Suspect]
     Route: 058
     Dates: start: 20070822
  23. METHOTREXATE [Suspect]
     Route: 048
     Dates: start: 20071116, end: 20071123
  24. METHOTREXATE [Suspect]
     Route: 048
     Dates: start: 20060825, end: 20060901
  25. PENTASA [Concomitant]
     Route: 048
     Dates: start: 20080917
  26. GOLIMUMAB [Suspect]
     Route: 058
     Dates: start: 20070314
  27. METHOTREXATE [Suspect]
     Indication: RHEUMATOID ARTHRITIS
     Route: 048
     Dates: start: 20071130, end: 20080208
  28. METHOTREXATE [Suspect]
     Route: 048
     Dates: start: 20060922, end: 20060929
  29. METHOTREXATE [Suspect]
     Route: 048
     Dates: start: 20060908, end: 20060915
  30. PROBIOTIC [Concomitant]
     Route: 048
     Dates: start: 20080820
  31. PENTASA [Concomitant]
     Route: 054
     Dates: start: 20090429
  32. GOLIMUMAB [Suspect]
     Route: 058
     Dates: start: 20080110
  33. GOLIMUMAB [Suspect]
     Route: 058
     Dates: start: 20080314
  34. GOLIMUMAB [Suspect]
     Route: 058
     Dates: start: 20080411
  35. GOLIMUMAB [Suspect]
     Route: 058
     Dates: start: 20080509
  36. METAMUCIL-2 [Concomitant]
     Route: 048
     Dates: start: 20080701
  37. NAPROXEN [Concomitant]
     Route: 048
     Dates: start: 20090401
  38. GOLIMUMAB [Suspect]
     Route: 058
     Dates: start: 20070629
  39. GOLIMUMAB [Suspect]
     Route: 058
     Dates: start: 20070730
  40. GOLIMUMAB [Suspect]
     Route: 058
     Dates: start: 20080213
  41. GOLIMUMAB [Suspect]
     Route: 058
     Dates: start: 20060423
  42. METHOTREXATE [Suspect]
     Route: 048
     Dates: start: 20061006, end: 20061013
  43. OMEPRAZOLE [Concomitant]
     Route: 048
     Dates: start: 20040101

REACTIONS (3)
  - SKIN GRAFT [None]
  - WOUND [None]
  - OPEN FRACTURE [None]
